FAERS Safety Report 4527176-X (Version None)
Quarter: 2004Q4

REPORT INFORMATION
  Report Type: 
  Country: None (occurrence: None)
  Receive Date: 20041213
  Receipt Date: 20041130
  Transmission Date: 20050328
  Serious: Yes (Life-Threatening, Hospitalization, Disabling)
  Sender: FDA-Public Use
  Company Number: 2004101528

PATIENT
  Age: 45 Year
  Sex: Female

DRUGS (1)
  1. TRANEXAMIC ACID (TRANEXAMIC ACID) [Suspect]
     Indication: MENORRHAGIA
     Dosage: 1000 MG PRN, ORAL
     Route: 048

REACTIONS (1)
  - CEREBROVASCULAR ACCIDENT [None]
